FAERS Safety Report 15469024 (Version 1)
Quarter: 2018Q4

REPORT INFORMATION
  Report Type: Spontaneous
  Country: US (occurrence: US)
  Receive Date: 20181003
  Receipt Date: 20181003
  Transmission Date: 20190205
  Serious: Yes (Life-Threatening)
  Sender: FDA-Public Use
  Company Number: None

PATIENT
  Age: 60 Year
  Sex: Male
  Weight: 90.85 kg

DRUGS (1)
  1. BUPRENORPHINE-NALOXONE [Suspect]
     Active Substance: BUPRENORPHINE HYDROCHLORIDE\NALOXONE HYDROCHLORIDE
     Dosage: ?          OTHER DOSE:8MG/2MG 2 TAB;?
     Route: 060
     Dates: start: 20171201

REACTIONS (7)
  - Nausea [None]
  - Cluster headache [None]
  - Abdominal discomfort [None]
  - Withdrawal syndrome [None]
  - Incorrect route of product administration [None]
  - Drug dependence [None]
  - Stomatitis [None]

NARRATIVE: CASE EVENT DATE: 20180904
